FAERS Safety Report 10376396 (Version 1)
Quarter: 2014Q3

REPORT INFORMATION
  Report Type: Spontaneous
  Country: US (occurrence: US)
  Receive Date: 20140811
  Receipt Date: 20140811
  Transmission Date: 20150326
  Serious: Yes (Hospitalization, Other)
  Sender: FDA-Public Use
  Company Number: US-009507513-1408USA001200

PATIENT
  Sex: Female

DRUGS (1)
  1. NUVARING [Suspect]
     Active Substance: ETHINYL ESTRADIOL\ETONOGESTREL
     Indication: PRODUCT USED FOR UNKNOWN INDICATION
     Dosage: UNK
     Route: 067
     Dates: end: 20100929

REACTIONS (12)
  - Splenic vein thrombosis [Unknown]
  - Anxiety disorder [Unknown]
  - Caesarean section [Unknown]
  - Cholecystectomy [Unknown]
  - Portal vein thrombosis [Unknown]
  - Benign intracranial hypertension [Unknown]
  - Appendicectomy [Unknown]
  - Pain [Unknown]
  - Depression [Unknown]
  - Asthma [Unknown]
  - Gastrooesophageal reflux disease [Unknown]
  - Insomnia [Unknown]

NARRATIVE: CASE EVENT DATE: 2009
